FAERS Safety Report 6990436-7 (Version None)
Quarter: 2010Q3

REPORT INFORMATION
  Report Type: 
  Country: None (occurrence: None)
  Receive Date: 20100916
  Receipt Date: 20100616
  Transmission Date: 20110219
  Serious: Yes (Other)
  Sender: FDA-Public Use
  Company Number: KR-PFIZER INC-2010075585

PATIENT
  Sex: Female

DRUGS (2)
  1. LYRICA [Suspect]
     Dosage: UNK
     Route: 048
  2. NEURONTIN [Suspect]
     Indication: NEURALGIA
     Dosage: 1800MG/DAY

REACTIONS (6)
  - CHEST DISCOMFORT [None]
  - DIZZINESS [None]
  - FEELING ABNORMAL [None]
  - MUSCULAR WEAKNESS [None]
  - PALPITATIONS [None]
  - TREATMENT NONCOMPLIANCE [None]
